FAERS Safety Report 6291427-4 (Version None)
Quarter: 2009Q3

REPORT INFORMATION
  Report Type: 
  Country: None (occurrence: None)
  Receive Date: 20090729
  Receipt Date: 20090729
  Transmission Date: 20100115
  Serious: Yes (Disabling)
  Sender: FDA-Public Use
  Company Number: None

PATIENT
  Age: 28 Year
  Sex: Male
  Weight: 94.8018 kg

DRUGS (3)
  1. CLINDAMYCIN HCL [Suspect]
     Indication: INFECTION
     Dosage: 300 MG 4 X PER DAY PO, SEVERAL COURSES
     Route: 048
     Dates: start: 20090629, end: 20090708
  2. BACTRIM [Suspect]
     Indication: INFECTION
     Dosage: 800/160 MG SEVERAL COURSES
     Route: 048
     Dates: start: 20090629, end: 20090708
  3. CEPHALEXIN [Suspect]
     Indication: INFECTION
     Dosage: 500 MG 4 X PER DAY PO
     Route: 048
     Dates: start: 20090629, end: 20090708

REACTIONS (3)
  - LIGAMENT RUPTURE [None]
  - ROTATOR CUFF SYNDROME [None]
  - TENDONITIS [None]
